FAERS Safety Report 9149065 (Version 1)
Quarter: 2013Q1

REPORT INFORMATION
  Report Type: Spontaneous
  Country: US (occurrence: None)
  Receive Date: 20130228
  Receipt Date: 20130228
  Transmission Date: 20140127
  Serious: No
  Sender: FDA-Public Use
  Company Number: None

PATIENT
  Age: 47 Year
  Sex: Male
  Weight: 60.9 kg

DRUGS (1)
  1. TEMAZEPAM [Suspect]
     Indication: INSOMNIA
     Dosage: MG  PO
     Route: 048
     Dates: start: 20060831, end: 20130221

REACTIONS (4)
  - Amnesia [None]
  - Medication error [None]
  - Drug abuse [None]
  - Drug interaction [None]
